FAERS Safety Report 8256089-5 (Version None)
Quarter: 2012Q1

REPORT INFORMATION
  Report Type: 
  Country: None (occurrence: None)
  Receive Date: 20120330
  Receipt Date: 20120320
  Transmission Date: 20120608
  Serious: Yes (Disabling)
  Sender: FDA-Public Use
  Company Number: AUR-APL-2012-01515

PATIENT
  Age: 67 Year
  Sex: Male
  Weight: 62 kg

DRUGS (15)
  1. DIGOXIN [Concomitant]
  2. DOSULEPIN (DOSULEPIN) [Concomitant]
  3. FUROSEMIDE [Concomitant]
  4. RAMIPRIL [Concomitant]
  5. ASPIRIN [Concomitant]
  6. LANSOPRAZOLE [Concomitant]
  7. COLCHICINE [Concomitant]
  8. SIMVASTATIN [Concomitant]
  9. BUDESONIDE [Concomitant]
  10. CLONAZEPAM [Concomitant]
  11. ALBUTEROL SULFATE [Concomitant]
  12. SPIRONOLACTONE [Concomitant]
  13. CARVEDILOL [Concomitant]
  14. NAPROXEN [Suspect]
     Indication: PRODUCT USED FOR UNKNOWN INDICATION
     Dosage: UNKNOWN
     Dates: start: 20120309
  15. TIOTROPIUM BROMIDE (TIOTROPIUM BROMIDE) [Concomitant]

REACTIONS (2)
  - CONDITION AGGRAVATED [None]
  - ASTHMA [None]
